FAERS Safety Report 10622056 (Version 1)
Quarter: 2014Q4

REPORT INFORMATION
  Report Type: Spontaneous
  Country: US (occurrence: None)
  Receive Date: 20141201
  Receipt Date: 20141201
  Transmission Date: 20150529
  Serious: Yes (Hospitalization)
  Sender: FDA-Public Use
  Company Number: None

PATIENT
  Sex: Male

DRUGS (1)
  1. GATTEX [Suspect]
     Active Substance: TEDUGLUTIDE\WATER
     Indication: SHORT-BOWEL SYNDROME
     Dosage: 0.318 ML  DAILY  SUBCUTANEOUSLY?08/20/2014 TO MIDDLE OF NOVEMBER
     Route: 058
     Dates: start: 20140820

REACTIONS (2)
  - Lung neoplasm malignant [None]
  - Hepatic failure [None]
